FAERS Safety Report 4283077-6 (Version None)
Quarter: 2004Q1

REPORT INFORMATION
  Report Type: 
  Country: None (occurrence: None)
  Receive Date: 20040129
  Receipt Date: 20040116
  Transmission Date: 20041129
  Serious: Yes (Other)
  Sender: FDA-Public Use
  Company Number: 2004003550

PATIENT
  Age: 76 Year
  Sex: Female
  Weight: 54.4316 kg

DRUGS (10)
  1. LIPITOR [Suspect]
     Indication: BLOOD CHOLESTEROL INCREASED
     Dosage: ORAL
     Route: 048
     Dates: end: 20040101
  2. HYZAAR [Suspect]
     Indication: ILL-DEFINED DISORDER
     Dosage: ORAL
     Route: 048
     Dates: end: 20030101
  3. ANASTRAZOLE (ANASTROZOLE) [Suspect]
     Indication: BREAST CANCER
  4. ENALAPRIL MALEATE [Concomitant]
  5. ISOSORBIDE MONONITRATE [Concomitant]
  6. WARFARIN SODIUM [Concomitant]
  7. METOPROLOL SUCCINATE [Concomitant]
  8. SPIRONOLACTONE [Concomitant]
  9. ACETYLSALICYLIC ACID SRT [Concomitant]
  10. DIGOXIN [Concomitant]

REACTIONS (5)
  - ALOPECIA [None]
  - BREAST CANCER [None]
  - DIZZINESS [None]
  - HYPOTRICHOSIS [None]
  - LABORATORY TEST ABNORMAL [None]
